FAERS Safety Report 9263955 (Version 2)
Quarter: 2013Q2

REPORT INFORMATION
  Report Type: Spontaneous
  Country: US (occurrence: US)
  Receive Date: 20130430
  Receipt Date: 20130603
  Transmission Date: 20140414
  Serious: Yes (Other)
  Sender: FDA-Public Use
  Company Number: US-BRISTOL-MYERS SQUIBB COMPANY-18817270

PATIENT
  Age: 74 Year
  Sex: Female
  Weight: 53.51 kg

DRUGS (2)
  1. ORENCIA FOR INJ [Suspect]
     Route: 042
  2. GLYBURIDE [Concomitant]
     Dosage: LAST DOSE ON 16APR13
     Route: 048

REACTIONS (3)
  - Thrombosis [Unknown]
  - Headache [Unknown]
  - Influenza like illness [Unknown]
